FAERS Safety Report 15454795 (Version 1)
Quarter: 2018Q3

REPORT INFORMATION
  Report Type: Spontaneous
  Country: US (occurrence: US)
  Receive Date: 20180927
  Receipt Date: 20180927
  Transmission Date: 20181010
  Serious: No
  Sender: FDA-Public Use
  Company Number: None

PATIENT
  Age: 61 Year
  Sex: Female

DRUGS (1)
  1. STELARA [Suspect]
     Active Substance: USTEKINUMAB
     Indication: CROHN^S DISEASE
     Dosage: OTHER
     Route: 058
     Dates: start: 201801

REACTIONS (9)
  - Retching [None]
  - Food intolerance [None]
  - Feeding disorder [None]
  - Balance disorder [None]
  - Asthenia [None]
  - Decreased appetite [None]
  - Weight decreased [None]
  - Nausea [None]
  - Vomiting [None]

NARRATIVE: CASE EVENT DATE: 20180926
